FAERS Safety Report 4380488-5 (Version None)
Quarter: 2004Q2

REPORT INFORMATION
  Report Type: 
  Country: None (occurrence: None)
  Receive Date: 20040618
  Receipt Date: 20040609
  Transmission Date: 20050107
  Serious: Yes (Hospitalization)
  Sender: FDA-Public Use
  Company Number: ES-JNJFOC-20040602415

PATIENT
  Age: 63 Year
  Sex: Male

DRUGS (8)
  1. REMICADE [Suspect]
     Indication: ANKYLOSING SPONDYLITIS
     Route: 042
  2. METHOTREXATE [Suspect]
     Indication: DRUG USE FOR UNKNOWN INDICATION
     Route: 065
  3. CEMIDON [Concomitant]
     Route: 065
  4. ACFOL [Concomitant]
     Route: 065
  5. PROSCAR [Concomitant]
     Route: 065
  6. PARIET [Concomitant]
     Route: 065
  7. DISNAL [Concomitant]
     Route: 065
  8. DISNAL [Concomitant]
     Route: 065

REACTIONS (2)
  - DRUG INTERACTION [None]
  - PNEUMONIA [None]
